FAERS Safety Report 15100435 (Version 2)
Quarter: 2018Q3

REPORT INFORMATION
  Report Type: Report from Study
  Country: IT (occurrence: IT)
  Receive Date: 20180703
  Receipt Date: 20180705
  Transmission Date: 20181010
  Serious: Yes (Other)
  Sender: FDA-Public Use
  Company Number: IT-TEVA-2018-IT-918412

PATIENT
  Age: 38 Year
  Sex: Female
  Weight: 40 kg

DRUGS (3)
  1. QUETIAPINE. [Suspect]
     Active Substance: QUETIAPINE
     Indication: PSYCHOTIC DISORDER
     Dosage: 75 MILLIGRAM DAILY;
     Route: 048
     Dates: start: 20170501, end: 20170801
  2. EN [Concomitant]
     Active Substance: DELORAZEPAM
     Indication: SLEEP DISORDER
     Route: 065
  3. SEROPRAM 40 MG / ML ORAL DROPS, SOLUTION [Concomitant]
     Indication: DEPRESSION
     Route: 065

REACTIONS (2)
  - Bipolar I disorder [Recovering/Resolving]
  - Drug ineffective [Recovering/Resolving]

NARRATIVE: CASE EVENT DATE: 20170715
